FAERS Safety Report 12196309 (Version 1)
Quarter: 2016Q1

REPORT INFORMATION
  Report Type: Spontaneous
  Country: FR (occurrence: FR)
  Receive Date: 20160321
  Receipt Date: 20160321
  Transmission Date: 20160526
  Serious: Yes (Hospitalization)
  Sender: FDA-Public Use
  Company Number: FR-TEVA-642872ISR

PATIENT
  Age: 14 Year
  Sex: Female

DRUGS (9)
  1. IBUPROFENE [Suspect]
     Active Substance: IBUPROFEN
     Indication: SUICIDE ATTEMPT
     Dosage: 10 DOSAGE FORMS DAILY; UNIQUE DOSE
     Route: 048
     Dates: start: 20160223, end: 20160223
  2. PARACETAMOL [Suspect]
     Active Substance: ACETAMINOPHEN
     Indication: SUICIDE ATTEMPT
     Dosage: 12 GRAM DAILY; UNIQUE DOSE
     Route: 048
     Dates: start: 20160222, end: 20160222
  3. SPASFON LYOC 80 MG [Suspect]
     Active Substance: PHLOROGLUCINOL
     Indication: SUICIDE ATTEMPT
     Dosage: 10 DOSAGE FORMS DAILY; FORM : LYOPHILISATE, UNIQUE DOSE
     Route: 048
     Dates: start: 20160223, end: 20160223
  4. ACIDE FOLIQUE [Suspect]
     Active Substance: FOLIC ACID
     Indication: SUICIDE ATTEMPT
     Dosage: 30 MILLIGRAM DAILY; UNIQUE DOSE
     Route: 048
     Dates: start: 20160223, end: 20160223
  5. FLANID 200 MG [Suspect]
     Active Substance: TIAPROFENIC ACID
     Indication: SUICIDE ATTEMPT
     Dosage: 15 DOSAGE FORMS DAILY; UNIQUE DOSE
     Route: 048
     Dates: start: 20160223, end: 20160223
  6. VOLTARENE [Suspect]
     Active Substance: DICLOFENAC SODIUM
     Indication: SUICIDE ATTEMPT
     Dosage: 20 DOSAGE FORMS DAILY; UNIQUE DOSE
     Route: 048
     Dates: start: 20160223, end: 20160223
  7. LUMIRELAX 500 MG [Suspect]
     Active Substance: METHOCARBAMOL
     Indication: SUICIDE ATTEMPT
     Dosage: 10 DOSAGE FORMS DAILY; UNIQUE DOSE
     Route: 048
     Dates: start: 20160223, end: 20160223
  8. DOLIPRANE [Concomitant]
     Active Substance: ACETAMINOPHEN
     Route: 048
     Dates: start: 20160223, end: 20160223
  9. AMOXICILLINE [Suspect]
     Active Substance: AMOXICILLIN
     Indication: SUICIDE ATTEMPT
     Dosage: 3 DOSAGE FORMS DAILY; UNIQUE DOSE
     Route: 048
     Dates: start: 20160223, end: 20160223

REACTIONS (4)
  - Abdominal pain upper [Recovering/Resolving]
  - Intentional overdose [None]
  - Toxicity to various agents [None]
  - Suicide attempt [None]

NARRATIVE: CASE EVENT DATE: 20160223
